FAERS Safety Report 6122885-3 (Version None)
Quarter: 2009Q1

REPORT INFORMATION
  Report Type: 
  Country: None (occurrence: None)
  Receive Date: 20090318
  Receipt Date: 20080805
  Transmission Date: 20090719
  Serious: No
  Sender: FDA-Public Use
  Company Number: US-AMGEN-KDL299357

PATIENT
  Sex: Male

DRUGS (3)
  1. NEULASTA [Suspect]
     Indication: CHEMOTHERAPY
  2. TAXOL [Concomitant]
  3. UNSPECIFIED MEDICATION [Concomitant]

REACTIONS (3)
  - BONE PAIN [None]
  - MYALGIA [None]
  - PYREXIA [None]
